FAERS Safety Report 18103051 (Version 1)
Quarter: 2020Q3

REPORT INFORMATION
  Report Type: Spontaneous
  Country: US (occurrence: US)
  Receive Date: 20200731
  Receipt Date: 20200731
  Transmission Date: 20201103
  Serious: Yes (Other)
  Sender: FDA-Public Use
  Company Number: None

PATIENT
  Age: 73 Year
  Sex: Female
  Weight: 92 kg

DRUGS (2)
  1. INSULIN ISOPHANE/REG 70/30 [Concomitant]
     Dates: start: 20200728, end: 20200731
  2. REMDESIVIR. [Suspect]
     Active Substance: REMDESIVIR
     Indication: COVID-19
     Dates: start: 20200729

REACTIONS (3)
  - Hypoglycaemia [None]
  - Hypothermia [None]
  - Oxygen saturation decreased [None]

NARRATIVE: CASE EVENT DATE: 20200731
